FAERS Safety Report 23744716 (Version 2)
Quarter: 2024Q2

REPORT INFORMATION
  Report Type: Spontaneous
  Country: JP (occurrence: JP)
  Receive Date: 20240415
  Receipt Date: 20240516
  Transmission Date: 20240716
  Serious: Yes (Hospitalization)
  Sender: FDA-Public Use
  Company Number: JP-GUERBETG_JAPAN-JP-20240042

PATIENT
  Age: 55 Year
  Sex: Female

DRUGS (2)
  1. LIPIODOL [Suspect]
     Active Substance: ETHIODIZED OIL
     Indication: Lymphangiogram
     Route: 027
  2. HISTOACRYL [Suspect]
     Active Substance: ENBUCRILATE
     Indication: Therapeutic embolisation
     Route: 027

REACTIONS (2)
  - Lymphoedema [Recovering/Resolving]
  - Product use in unapproved indication [Recovering/Resolving]
